FAERS Safety Report 7883751-6 (Version None)
Quarter: 2011Q4

REPORT INFORMATION
  Report Type: 
  Country: None (occurrence: None)
  Receive Date: 20111102
  Receipt Date: 20111025
  Transmission Date: 20120403
  Serious: Yes (Hospitalization)
  Sender: FDA-Public Use
  Company Number: DE-B.I. PHARMACEUTICALS,INC./RIDGEFIELD-2011-DE-05814DE

PATIENT
  Sex: Male
  Weight: 87 kg

DRUGS (12)
  1. TIOPRONIN [Suspect]
     Indication: CHRONIC OBSTRUCTIVE PULMONARY DISEASE
     Dosage: 18 MCG
     Route: 055
     Dates: start: 20110414, end: 20110904
  2. SIMVASTATIN [Concomitant]
     Indication: HYPERLIPIDAEMIA
     Dosage: 40 MG
     Route: 048
     Dates: start: 20010101
  3. SYMBICORT [Concomitant]
     Indication: CHRONIC OBSTRUCTIVE PULMONARY DISEASE
     Dosage: STRENGTH: 9/320 ?G; DAILY DOSE: 18/640 ?G
     Route: 055
     Dates: start: 20110905
  4. RAMIPRIL [Concomitant]
     Indication: HYPERTENSION
     Dosage: STRENGTH + DAILY DOSE: 5/25 MG
     Route: 048
     Dates: start: 20100501
  5. ALBUTEROL SULFATE AUTOHALER [Suspect]
     Indication: CHRONIC OBSTRUCTIVE PULMONARY DISEASE
     Route: 055
     Dates: start: 20110905
  6. GLIMEPIRID [Concomitant]
     Indication: DIABETES MELLITUS
     Dosage: 3 MG
     Route: 048
  7. SALMETEROL [Suspect]
     Indication: CHRONIC OBSTRUCTIVE PULMONARY DISEASE
     Dosage: 110 MCG
     Route: 055
     Dates: start: 20110414, end: 20110904
  8. METFORMIN HCL [Concomitant]
     Indication: DIABETES MELLITUS
     Dosage: 1700 MG
     Route: 048
  9. BLIND (FLUTICASONE) [Suspect]
     Indication: CHRONIC OBSTRUCTIVE PULMONARY DISEASE
     Route: 055
     Dates: start: 20110531, end: 20110904
  10. ATROVENT [Concomitant]
     Indication: CHRONIC OBSTRUCTIVE PULMONARY DISEASE
     Dosage: 80 MCG
     Route: 055
     Dates: start: 20110905
  11. ALBUTEROL SULFATE AUTOHALER [Suspect]
     Route: 055
     Dates: start: 20110414, end: 20110903
  12. FLUTICASON [Concomitant]
     Indication: CHRONIC OBSTRUCTIVE PULMONARY DISEASE

REACTIONS (1)
  - ANGINA UNSTABLE [None]
